FAERS Safety Report 20020645 (Version 5)
Quarter: 2022Q3

REPORT INFORMATION
  Report Type: Spontaneous
  Country: JP (occurrence: JP)
  Receive Date: 20211101
  Receipt Date: 20220728
  Transmission Date: 20221026
  Serious: Yes (Other)
  Sender: FDA-Public Use
  Company Number: JP-NOVARTISPH-NVSJ2021JP017745

PATIENT
  Sex: Male
  Weight: 54 kg

DRUGS (6)
  1. ZOLEDRONIC ACID [Suspect]
     Active Substance: ZOLEDRONIC ACID
     Indication: Oesophageal carcinoma
     Dosage: 4 MG, QMO
     Route: 042
  2. ZOLEDRONIC ACID [Suspect]
     Active Substance: ZOLEDRONIC ACID
     Indication: Metastases to spine
  3. DICLOFENAC [Concomitant]
     Active Substance: DICLOFENAC
     Indication: Spinal pain
     Dosage: 50 MG, BID
     Route: 054
  4. PROCHLORPERAZINE [Concomitant]
     Active Substance: PROCHLORPERAZINE
     Indication: Nausea
     Dosage: 15 MG
     Route: 065
  5. MAGNESIUM OXIDE [Concomitant]
     Active Substance: MAGNESIUM OXIDE
     Indication: Constipation
     Dosage: 1000 MG
     Route: 065
  6. SENNOSIDES [Concomitant]
     Active Substance: SENNOSIDES
     Indication: Constipation
     Dosage: UNK UNK, PRN
     Route: 065

REACTIONS (4)
  - Diffuse large B-cell lymphoma stage III [Unknown]
  - Second primary malignancy [Unknown]
  - Osteonecrosis of jaw [Unknown]
  - Pain in jaw [Recovering/Resolving]
